FAERS Safety Report 20049857 (Version 1)
Quarter: 2021Q4

REPORT INFORMATION
  Report Type: Report from Study
  Country: BE (occurrence: BE)
  Receive Date: 20211109
  Receipt Date: 20211109
  Transmission Date: 20220303
  Serious: Yes (Other)
  Sender: FDA-Public Use
  Company Number: BE-ROCHE-2714231

PATIENT
  Age: 68 Year
  Sex: Female
  Weight: 80.5 kg

DRUGS (31)
  1. CARBOPLATIN [Suspect]
     Active Substance: CARBOPLATIN
     Indication: Small cell lung cancer extensive stage
     Dosage: 600 MG
     Route: 065
  2. ETOPOSIDE [Suspect]
     Active Substance: ETOPOSIDE
     Indication: Small cell lung cancer extensive stage
     Dosage: 184 MG ,17/SEP/2020
     Route: 065
  3. ATEZOLIZUMAB [Suspect]
     Active Substance: ATEZOLIZUMAB
     Indication: Small cell lung cancer extensive stage
     Dosage: UNIT DOSE :1200 MG ,17/SEP/2020, 07/OCT/2020, 28/OCT/2020, 18/NOV/2020,  09/DEC/2020, 30/DEC/2020, 2
     Route: 042
  4. LEVOTHYROXINE [Concomitant]
     Active Substance: LEVOTHYROXINE
     Dates: start: 2005
  5. ACETAMINOPHEN [Concomitant]
     Active Substance: ACETAMINOPHEN
     Dates: start: 20210203
  6. COVID-19 VACCINE [Concomitant]
     Dates: start: 20210318, end: 20210318
  7. LORMETAZEPAM [Concomitant]
     Active Substance: LORMETAZEPAM
     Dates: start: 1992
  8. ATORVASTATIN [Concomitant]
     Active Substance: ATORVASTATIN
     Dates: start: 2000
  9. WHOLE BLOOD [Concomitant]
     Active Substance: WHOLE BLOOD
     Dates: start: 20201028, end: 20201028
  10. FUROSEMIDE [Concomitant]
     Active Substance: FUROSEMIDE
     Dates: start: 2004
  11. FOSFOMYCIN TROMETHAMINE [Concomitant]
     Active Substance: FOSFOMYCIN TROMETHAMINE
     Route: 065
     Dates: start: 20200930, end: 20200930
  12. VARIVENOL [Concomitant]
     Dates: start: 2017
  13. ETOPOSIDE [Concomitant]
     Active Substance: ETOPOSIDE
     Indication: Neoplasm malignant
  14. ETOPOSIDE [Concomitant]
     Active Substance: ETOPOSIDE
     Indication: Small cell lung cancer extensive stage
  15. DEXAMETHASONE [Concomitant]
     Active Substance: DEXAMETHASONE
     Dosage: 10 MG
     Dates: start: 20200826, end: 20200826
  16. DEXAMETHASONE [Concomitant]
     Active Substance: DEXAMETHASONE
     Dosage: 10 MG
     Dates: start: 20200917, end: 20200917
  17. PALONOSETRON [Concomitant]
     Active Substance: PALONOSETRON
     Dosage: 0.5 MG
     Dates: start: 20200917, end: 20200917
  18. PALONOSETRON [Concomitant]
     Active Substance: PALONOSETRON
     Dosage: 0.5 MG
     Dates: start: 20200826, end: 20200826
  19. PALONOSETRON [Concomitant]
     Active Substance: PALONOSETRON
     Dosage: 0.5 MG
     Dates: start: 20201007, end: 20201007
  20. PALONOSETRON [Concomitant]
     Active Substance: PALONOSETRON
     Dosage: 0.5 MG
     Dates: start: 20201028, end: 20201028
  21. PALONOSETRON [Concomitant]
     Active Substance: PALONOSETRON
     Dates: start: 20200917, end: 20200917
  22. BISOPROLOL [Concomitant]
     Active Substance: BISOPROLOL
     Dates: start: 2004
  23. GYNO DAKTARIN [Concomitant]
  24. NETUPITANT [Concomitant]
     Active Substance: NETUPITANT
     Dosage: 300 MG
     Dates: start: 20201007, end: 20201007
  25. NETUPITANT [Concomitant]
     Active Substance: NETUPITANT
     Dosage: 300 MG
     Dates: start: 20200826, end: 20200826
  26. NETUPITANT [Concomitant]
     Active Substance: NETUPITANT
     Dosage: 300 MG
     Dates: start: 20201028, end: 20201028
  27. NETUPITANT [Concomitant]
     Active Substance: NETUPITANT
     Dosage: 300 MG
     Dates: start: 20200917, end: 20200917
  28. INDACATEROL [Concomitant]
     Active Substance: INDACATEROL
     Dates: start: 20201029
  29. INFLUENZA VIRUS VACCINE [Concomitant]
     Active Substance: INFLUENZA VIRUS VACCINE
     Dates: start: 202011
  30. CARBOPLATIN [Concomitant]
     Active Substance: CARBOPLATIN
     Indication: Neoplasm malignant
  31. VOLTAREN [Concomitant]
     Active Substance: DICLOFENAC SODIUM
     Dates: start: 202012, end: 202012

REACTIONS (26)
  - Thrombocytopenia [Recovered/Resolved]
  - Polyneuropathy [Not Recovered/Not Resolved]
  - Hyperuricaemia [Recovered/Resolved]
  - Anaemia [Recovered/Resolved]
  - Mouth ulceration [Recovered/Resolved]
  - Alopecia [Not Recovered/Not Resolved]
  - Dyspnoea [Not Recovered/Not Resolved]
  - Rash [Recovered/Resolved]
  - Vulvovaginal mycotic infection [Not Recovered/Not Resolved]
  - Urinary tract infection [Recovered/Resolved]
  - Blood creatine phosphokinase increased [Recovered/Resolved]
  - Dysgeusia [Recovered/Resolved]
  - Hypomagnesaemia [Recovered/Resolved]
  - Anaemia [Recovered/Resolved]
  - Hypotension [Not Recovered/Not Resolved]
  - Decreased appetite [Recovered/Resolved]
  - Constipation [Not Recovered/Not Resolved]
  - Tremor [Not Recovered/Not Resolved]
  - Hypoacusis [Not Recovered/Not Resolved]
  - Weight decreased [Recovered/Resolved]
  - Asthenia [Not Recovered/Not Resolved]
  - Nausea [Recovered/Resolved]
  - Contusion [Recovered/Resolved]
  - Myalgia [Recovered/Resolved]
  - Arthralgia [Not Recovered/Not Resolved]
  - Decreased appetite [Recovered/Resolved]

NARRATIVE: CASE EVENT DATE: 20200827
